FAERS Safety Report 25328018 (Version 4)
Quarter: 2025Q2

REPORT INFORMATION
  Report Type: Other
  Country: US (occurrence: US)
  Receive Date: 20250518
  Receipt Date: 20250616
  Transmission Date: 20250717
  Serious: Yes (Other)
  Sender: TRAVERE THERAPEUTICS
  Company Number: US-TRAVERE-2025TVT00690

PATIENT
  Age: 43 Year
  Sex: Male
  Weight: 73.94 kg

DRUGS (5)
  1. FILSPARI [Suspect]
     Active Substance: SPARSENTAN
     Indication: IgA nephropathy
     Route: 048
     Dates: start: 20240304
  2. TARPEYO [Suspect]
     Active Substance: BUDESONIDE
     Indication: Product used for unknown indication
  3. COREG [Concomitant]
     Active Substance: CARVEDILOL
  4. CARDURA [Concomitant]
     Active Substance: DOXAZOSIN MESYLATE
  5. JARDIANCE [Concomitant]
     Active Substance: EMPAGLIFLOZIN

REACTIONS (16)
  - Blood pressure increased [Recovering/Resolving]
  - Urine protein/creatinine ratio increased [Unknown]
  - Blood creatinine increased [Unknown]
  - Blood urea increased [Unknown]
  - Haematocrit decreased [Unknown]
  - Haemoglobin decreased [Unknown]
  - Blood calcium abnormal [Unknown]
  - Blood parathyroid hormone increased [Unknown]
  - Creatinine urine abnormal [Unknown]
  - Blood potassium increased [Unknown]
  - Carbon dioxide decreased [Unknown]
  - Blood phosphorus increased [Unknown]
  - Glomerular filtration rate decreased [Unknown]
  - Blood chloride increased [Unknown]
  - Vitamin D abnormal [Unknown]
  - Migraine [Unknown]

NARRATIVE: CASE EVENT DATE: 20240411
